FAERS Safety Report 23737399 (Version 2)
Quarter: 2024Q2

REPORT INFORMATION
  Report Type: Spontaneous
  Country: US (occurrence: US)
  Receive Date: 20240412
  Receipt Date: 20240604
  Transmission Date: 20240716
  Serious: Yes (Other)
  Sender: FDA-Public Use
  Company Number: US-CTI BIOPHARMA-2024US04527

PATIENT
  Age: 53 Year
  Sex: Female

DRUGS (2)
  1. VONJO [Suspect]
     Active Substance: PACRITINIB
     Indication: Myelofibrosis
     Dosage: 200 MG, BID
     Route: 048
     Dates: start: 20240131
  2. VONJO [Suspect]
     Active Substance: PACRITINIB
     Dosage: 200 MG, BID
     Route: 048
     Dates: start: 20240417

REACTIONS (4)
  - Diarrhoea [Unknown]
  - Product dose omission issue [Unknown]
  - Myeloproliferative neoplasm [Unknown]
  - Drug ineffective [Unknown]
